FAERS Safety Report 24408436 (Version 3)
Quarter: 2024Q4

REPORT INFORMATION
  Report Type: Spontaneous
  Country: CH (occurrence: CH)
  Receive Date: 20241007
  Receipt Date: 20241227
  Transmission Date: 20250114
  Serious: Yes (Hospitalization)
  Sender: TEVA
  Company Number: CH-TEVA-VS-3250168

PATIENT
  Age: 78 Year
  Sex: Female

DRUGS (1)
  1. ATENOLOL\CHLORTHALIDONE [Suspect]
     Active Substance: ATENOLOL\CHLORTHALIDONE
     Indication: Diuretic therapy
     Dosage: MEPHA NEO MITE 50/12.5, DOSE 50-12.5 MG-MG
     Route: 048
     Dates: start: 2024

REACTIONS (10)
  - Hyponatraemia [Recovered/Resolved]
  - Hypokalaemia [Recovered/Resolved]
  - Dizziness [Recovered/Resolved]
  - Cold sweat [Recovered/Resolved]
  - Urinary incontinence [Recovered/Resolved]
  - Fatigue [Recovering/Resolving]
  - Prescribed overdose [Unknown]
  - Cough [Recovering/Resolving]
  - COVID-19 [Recovering/Resolving]
  - Product prescribing error [Unknown]

NARRATIVE: CASE EVENT DATE: 20240101
